FAERS Safety Report 25096511 (Version 1)
Quarter: 2025Q1

REPORT INFORMATION
  Report Type: Spontaneous
  Country: DE (occurrence: DE)
  Receive Date: 20250319
  Receipt Date: 20250319
  Transmission Date: 20250409
  Serious: Yes (Other)
  Sender: NOVARTIS
  Company Number: DE-002147023-NVSC2025DE043829

PATIENT
  Age: 60 Year
  Sex: Male

DRUGS (1)
  1. NILOTINIB [Suspect]
     Active Substance: NILOTINIB
     Indication: Chronic myeloid leukaemia
     Route: 065

REACTIONS (4)
  - Endocarditis fibroplastica [Recovered/Resolved with Sequelae]
  - Chronic myelomonocytic leukaemia [Unknown]
  - Eosinophilia [Unknown]
  - Feeling abnormal [Recovered/Resolved with Sequelae]
